FAERS Safety Report 23744158 (Version 1)
Quarter: 2024Q2

REPORT INFORMATION
  Report Type: Spontaneous
  Country: US (occurrence: None)
  Receive Date: 20240414
  Receipt Date: 20240414
  Transmission Date: 20240716
  Serious: No
  Sender: FDA-Public Use
  Company Number: None

PATIENT
  Age: 49 Year
  Sex: Female
  Weight: 56.25 kg

DRUGS (1)
  1. TORADOL [Suspect]
     Active Substance: KETOROLAC TROMETHAMINE
     Indication: Migraine
     Dates: start: 20240405, end: 20240413

REACTIONS (5)
  - Migraine [None]
  - Depression [None]
  - Anxiety [None]
  - Chest discomfort [None]
  - Tinnitus [None]

NARRATIVE: CASE EVENT DATE: 20240407
